FAERS Safety Report 20176236 (Version 2)
Quarter: 2021Q4

REPORT INFORMATION
  Report Type: Spontaneous
  Country: FR (occurrence: FR)
  Receive Date: 20211213
  Receipt Date: 20211215
  Transmission Date: 20220303
  Serious: Yes (Life-Threatening)
  Sender: FDA-Public Use
  Company Number: None

PATIENT
  Age: 44 Year
  Sex: Male

DRUGS (2)
  1. VFEND [Interacting]
     Active Substance: VORICONAZOLE
     Indication: Aspergillus infection
     Dosage: 400 MG, 2X/DAY
     Route: 048
     Dates: start: 20210610, end: 20210617
  2. VENETOCLAX [Interacting]
     Active Substance: VENETOCLAX
     Indication: Plasma cell myeloma
     Dosage: 400 MG, 1X/DAY
     Route: 048
     Dates: start: 20210614

REACTIONS (2)
  - Tumour lysis syndrome [Recovered/Resolved]
  - Drug interaction [Unknown]

NARRATIVE: CASE EVENT DATE: 20210614
